FAERS Safety Report 12062135 (Version 1)
Quarter: 2016Q1

REPORT INFORMATION
  Report Type: Spontaneous
  Country: US (occurrence: CA)
  Receive Date: 20160210
  Receipt Date: 20160210
  Transmission Date: 20160526
  Serious: Yes (Death)
  Sender: FDA-Public Use
  Company Number: US-SA-200322123GDDC

PATIENT
  Age: 60 Year
  Sex: Male

DRUGS (13)
  1. AMITRIPTYLINE [Concomitant]
     Active Substance: AMITRIPTYLINE
     Dosage: DOSE AS USED: UNK
  2. MICARDIS [Suspect]
     Active Substance: TELMISARTAN
     Dosage: DOSE AS USED: UNK
     Route: 048
  3. INSULIN [Concomitant]
     Active Substance: INSULIN NOS
     Dosage: DOSE AS USED: UNK
  4. METOPROLOL. [Concomitant]
     Active Substance: METOPROLOL
     Dosage: DOSE AS USED: UNK
  5. RANITIDINE [Concomitant]
     Active Substance: RANITIDINE\RANITIDINE HYDROCHLORIDE
     Dosage: DOSE AS USED: UNK
  6. RAMIPRIL. [Suspect]
     Active Substance: RAMIPRIL
     Route: 048
  7. GEMFIBROZIL. [Concomitant]
     Active Substance: GEMFIBROZIL
     Dosage: DOSE AS USED: UNK
  8. FUROSEMIDE. [Suspect]
     Active Substance: FUROSEMIDE
     Dosage: DOSE AS USED: UNK
     Route: 065
  9. AMIODARONE [Concomitant]
     Active Substance: AMIODARONE
     Dosage: DOSE AS USED: UNK
  10. ROSIGLITAZONE MALEATE. [Concomitant]
     Active Substance: ROSIGLITAZONE MALEATE
  11. METFORMIN HYDROCHLORIDE. [Suspect]
     Active Substance: METFORMIN HYDROCHLORIDE
     Dosage: DOSE AS USED: UNK
     Route: 065
  12. NEURONTIN [Concomitant]
     Active Substance: GABAPENTIN
     Dosage: DOSE AS USED: UNK
  13. ASA [Concomitant]
     Active Substance: ASPIRIN
     Dosage: DOSE AS USED: UNK

REACTIONS (4)
  - Chronic kidney disease [Fatal]
  - Blood creatinine increased [Fatal]
  - Cardiogenic shock [Fatal]
  - Acute kidney injury [Fatal]
